FAERS Safety Report 6354726-3 (Version None)
Quarter: 2009Q3

REPORT INFORMATION
  Report Type: 
  Country: None (occurrence: None)
  Receive Date: 20090909
  Receipt Date: 20090826
  Transmission Date: 20100115
  Serious: Yes (Hospitalization)
  Sender: FDA-Public Use
  Company Number: GXKR2009AU09686

PATIENT
  Age: 80 Year
  Sex: Male

DRUGS (9)
  1. FUROSEMIDE [Suspect]
     Dosage: 40 MG, QD; 80 MG, QD
  2. RAMIPRIL [Concomitant]
  3. MELOXICAM [Concomitant]
  4. ASPIRIN [Concomitant]
  5. GLYCERYLNITRAT (GLYCERYL TRINITRATE) SPRAY [Concomitant]
  6. ALLOPURINOL [Concomitant]
  7. CALCIUM (CALCIUM) [Concomitant]
  8. OSTELIN (ERGOCALCIFEROL) [Concomitant]
  9. SIMVASTATIN [Concomitant]

REACTIONS (9)
  - ACUTE CORONARY SYNDROME [None]
  - CARDIAC FAILURE CONGESTIVE [None]
  - CELLULITIS [None]
  - CONFUSIONAL STATE [None]
  - GOUT [None]
  - JOINT SWELLING [None]
  - MOBILITY DECREASED [None]
  - RENAL IMPAIRMENT [None]
  - SEPSIS [None]
